FAERS Safety Report 4537397-8 (Version None)
Quarter: 2005Q1

REPORT INFORMATION
  Report Type: 
  Country: None (occurrence: None)
  Receive Date: 20041223
  Receipt Date: 20041214
  Transmission Date: 20050727
  Serious: Yes (Hospitalization, Other)
  Sender: FDA-Public Use
  Company Number: GR-ABBOTT-04P-066-0283720-00

PATIENT
  Age: 73 Year
  Sex: Male

DRUGS (12)
  1. WARFARIN SODIUM [Suspect]
     Indication: THROMBOSIS PROPHYLAXIS
     Dosage: ON ALTERNATING DAYS
     Dates: start: 19860101, end: 20030430
  2. WARFARIN SODIUM [Suspect]
     Dosage: ON ALTERNATING DAYS
     Dates: start: 19860101, end: 20030430
  3. WARFARIN SODIUM [Suspect]
     Dates: start: 20030504, end: 20030504
  4. WARFARIN SODIUM [Suspect]
     Dosage: ON ALTERNATING DAYS
     Dates: start: 20030506
  5. WARFARIN SODIUM [Suspect]
     Dosage: ON ALTERNATING DAYS
     Dates: start: 20030507
  6. TELITHROMYCIN [Suspect]
     Indication: DYSPNOEA
  7. TELITHROMYCIN [Interacting]
     Indication: COUGH
  8. LEVODOPA PLUS [Concomitant]
     Indication: DRUG USE FOR UNKNOWN INDICATION
  9. BENSERAZIDE HYDROCHLORIDE [Concomitant]
     Indication: DRUG USE FOR UNKNOWN INDICATION
  10. SELEGILINE HYDROCHLORIDE [Concomitant]
     Indication: DRUG USE FOR UNKNOWN INDICATION
  11. ALBUTEROL PLUS IPRATROPIUM [Concomitant]
     Indication: DRUG USE FOR UNKNOWN INDICATION
  12. BECLOMETHASONE DIPROPIONATE [Concomitant]
     Indication: DRUG USE FOR UNKNOWN INDICATION

REACTIONS (3)
  - DRUG INTERACTION [None]
  - HAEMOPTYSIS [None]
  - INTERNATIONAL NORMALISED RATIO INCREASED [None]
